FAERS Safety Report 9639248 (Version 1)
Quarter: 2013Q4

REPORT INFORMATION
  Report Type: Spontaneous
  Country: FR (occurrence: FR)
  Receive Date: 20131022
  Receipt Date: 20131022
  Transmission Date: 20140711
  Serious: Yes (Other)
  Sender: FDA-Public Use
  Company Number: FR-ABBVIE-13P-056-1159934-00

PATIENT
  Age: 73 Year
  Sex: Male

DRUGS (5)
  1. DEPAKINE [Suspect]
     Indication: STATUS EPILEPTICUS
     Route: 042
     Dates: start: 20130902, end: 20130902
  2. METOCLOPRAMIDE [Suspect]
     Indication: STATUS EPILEPTICUS
     Route: 042
     Dates: start: 20130902, end: 20130902
  3. METFORMIN [Concomitant]
     Indication: PRODUCT USED FOR UNKNOWN INDICATION
  4. DEPAKINE [Concomitant]
     Indication: PRODUCT USED FOR UNKNOWN INDICATION
  5. KEPPRA [Concomitant]
     Indication: PRODUCT USED FOR UNKNOWN INDICATION

REACTIONS (1)
  - Urticaria [Recovered/Resolved]
